FAERS Safety Report 11156173 (Version 1)
Quarter: 2015Q2

REPORT INFORMATION
  Report Type: Spontaneous
  Country: JP (occurrence: JP)
  Receive Date: 20150602
  Receipt Date: 20150602
  Transmission Date: 20150821
  Serious: Yes (Other)
  Sender: FDA-Public Use
  Company Number: JP-ASTRAZENECA-2015SE51871

PATIENT
  Age: 84 Year
  Sex: Male

DRUGS (2)
  1. CASODEX [Suspect]
     Active Substance: BICALUTAMIDE
     Route: 048
  2. SEVEN OTHER CONCOMITANT DRUGS [Concomitant]

REACTIONS (3)
  - Hyperhidrosis [Unknown]
  - Malignant neoplasm progression [Unknown]
  - Thirst [Unknown]
